FAERS Safety Report 16123891 (Version 3)
Quarter: 2019Q2

REPORT INFORMATION
  Report Type: Spontaneous
  Country: JP (occurrence: JP)
  Receive Date: 20190327
  Receipt Date: 20190424
  Transmission Date: 20190711
  Serious: Yes (Hospitalization, Disabling)
  Sender: FDA-Public Use
  Company Number: JP-ANIPHARMA-2019-JP-000063

PATIENT
  Age: 85 Year
  Sex: Female
  Weight: 59 kg

DRUGS (3)
  1. ARIMIDEX [Suspect]
     Active Substance: ANASTROZOLE
     Indication: BREAST CANCER
     Dosage: 1 MG QD / 1 MG QD
     Route: 048
  2. ATORVASTATIN [Concomitant]
     Active Substance: ATORVASTATIN
     Dosage: 10 MG QD
     Dates: start: 201702
  3. AROMASIN [Concomitant]
     Active Substance: EXEMESTANE
     Dosage: UNK
     Route: 065

REACTIONS (3)
  - Osteoarthritis [Unknown]
  - Thrombotic cerebral infarction [Not Recovered/Not Resolved]
  - Pulmonary infarction [Recovered/Resolved with Sequelae]

NARRATIVE: CASE EVENT DATE: 20180314
